FAERS Safety Report 16928808 (Version 2)
Quarter: 2019Q4

REPORT INFORMATION
  Report Type: Spontaneous
  Country: IT (occurrence: IT)
  Receive Date: 20191017
  Receipt Date: 20191120
  Transmission Date: 20200122
  Serious: Yes (Death, Hospitalization, Other)
  Sender: FDA-Public Use
  Company Number: IT-JAZZ-2019-IT-014110

PATIENT
  Age: 70 Year
  Sex: Male
  Weight: 60 kg

DRUGS (1)
  1. VYXEOS [Suspect]
     Active Substance: CYTARABINE\DAUNORUBICIN
     Indication: ACUTE MYELOID LEUKAEMIA
     Dosage: FIRST INDUCTION, DAY 1. 3. 5
     Route: 042
     Dates: start: 20190902, end: 20190906

REACTIONS (3)
  - Coma [Fatal]
  - Blast cells present [Unknown]
  - Seizure [Unknown]

NARRATIVE: CASE EVENT DATE: 20190925
